FAERS Safety Report 24439283 (Version 8)
Quarter: 2025Q3

REPORT INFORMATION
  Report Type: Spontaneous
  Country: IN (occurrence: IN)
  Receive Date: 20241015
  Receipt Date: 20250730
  Transmission Date: 20251021
  Serious: Yes (Other)
  Sender: PFIZER
  Company Number: IN-PFIZER INC-PV202400104158

PATIENT
  Age: 52 Year
  Sex: Female

DRUGS (3)
  1. LORLATINIB [Suspect]
     Active Substance: LORLATINIB
     Indication: Lung adenocarcinoma stage IV
     Dosage: 100 MG, 1X/DAY (WITH OR WITHOUT FOOD, SWALLOW TABLET WHOLE, DO NOT CHEW, CRUSH X 4 WEEKS)
     Route: 048
     Dates: start: 20240707
  2. PANTOPRAZOLE SODIUM [Concomitant]
     Active Substance: PANTOPRAZOLE SODIUM
     Indication: Gastritis
     Route: 048
  3. ROSUVAS [ROSUVASTATIN] [Concomitant]
     Dosage: 20 MG, 1X/DAY (ONCE DAILY)
     Route: 048

REACTIONS (13)
  - Appendicitis perforated [Unknown]
  - Hydronephrosis [Unknown]
  - Blood triglycerides increased [Unknown]
  - Hypercholesterolaemia [Recovering/Resolving]
  - Oedema peripheral [Recovered/Resolved]
  - Varicose vein [Unknown]
  - Peripheral venous disease [Unknown]
  - Cardiomegaly [Unknown]
  - Proteinuria [Unknown]
  - Abdominal tenderness [Unknown]
  - Abdominal pain [Unknown]
  - White blood cells urine positive [Unknown]
  - Cough [Unknown]

NARRATIVE: CASE EVENT DATE: 20240719
